FAERS Safety Report 9315574 (Version 1)
Quarter: 2013Q2

REPORT INFORMATION
  Report Type: Spontaneous
  Country: DE (occurrence: DE)
  Receive Date: 20130529
  Receipt Date: 20130529
  Transmission Date: 20140414
  Serious: Yes (Congenital Anomaly, Other)
  Sender: FDA-Public Use
  Company Number: DE-TEVA-405734GER

PATIENT
  Sex: Male
  Weight: 4.12 kg

DRUGS (4)
  1. VENLAFAXINE [Suspect]
     Route: 064
  2. QUILONORM RETARD [Suspect]
     Route: 064
  3. SEROQUEL PROLONG [Suspect]
     Route: 064
  4. FOLS?URE RATIOPHARM [Concomitant]
     Route: 064

REACTIONS (6)
  - Neonatal respiratory distress syndrome [Recovered/Resolved]
  - Drug withdrawal syndrome neonatal [Recovered/Resolved]
  - Congenital hydronephrosis [Unknown]
  - Persistent foetal circulation [Unknown]
  - Bundle branch block right [Unknown]
  - Large for dates baby [Unknown]
